FAERS Safety Report 9747534 (Version 1)
Quarter: 2013Q4

REPORT INFORMATION
  Report Type: Spontaneous
  Country: US (occurrence: None)
  Receive Date: 20131205
  Receipt Date: 20131205
  Transmission Date: 20140711
  Serious: Yes (Hospitalization)
  Sender: FDA-Public Use
  Company Number: 001636794A

PATIENT
  Age: 35 Year
  Sex: Male

DRUGS (4)
  1. PROACTIV+ SKIN SMOOTHING EXFOLIATOR [Suspect]
     Indication: ACNE
     Dosage: DERMAL TWICE DAILY
     Dates: start: 20131111, end: 20131120
  2. PROACTIV+ PORE TARGETING TREATMENT [Suspect]
     Indication: ACNE
     Dosage: DERMAL TWICE DAILY
     Dates: start: 20131111, end: 20131120
  3. PROACTIV+ COMPLEXION PERFECTING HYDRATOR [Suspect]
     Indication: ACNE
     Dosage: DERMAL TWICE DAILY
     Dates: start: 20131111, end: 20131120
  4. PROACTIV+ MARK FADING PADS [Suspect]
     Indication: ACNE
     Dosage: DERMAL TWICE DAILY
     Dates: start: 20131111, end: 20131120

REACTIONS (3)
  - Skin irritation [None]
  - Cough [None]
  - Respiratory disorder [None]
